FAERS Safety Report 16840360 (Version 1)
Quarter: 2019Q3

REPORT INFORMATION
  Report Type: Spontaneous
  Country: US (occurrence: US)
  Receive Date: 20190923
  Receipt Date: 20190923
  Transmission Date: 20191005
  Serious: No
  Sender: FDA-Public Use
  Company Number: US-BRECKENRIDGE PHARMACEUTICAL, INC.-2074784

PATIENT
  Age: 48 Year
  Sex: Female
  Weight: 49.55 kg

DRUGS (2)
  1. AZELASTINE HYDROCHLORIDE. [Suspect]
     Active Substance: AZELASTINE HYDROCHLORIDE
     Route: 045
  2. TOPAMAX [Suspect]
     Active Substance: TOPIRAMATE
     Route: 048

REACTIONS (4)
  - Ageusia [None]
  - Dysgeusia [None]
  - Anosmia [None]
  - Drug ineffective [None]
